FAERS Safety Report 11685537 (Version 2)
Quarter: 2016Q2

REPORT INFORMATION
  Report Type: Report from Study
  Country: VE (occurrence: VE)
  Receive Date: 20151030
  Receipt Date: 20160603
  Transmission Date: 20160815
  Serious: Yes (Disabling, Other)
  Sender: FDA-Public Use
  Company Number: PHHY2015VE140190

PATIENT
  Sex: Female

DRUGS (7)
  1. PANTOPRAZOLE [Concomitant]
     Active Substance: PANTOPRAZOLE SODIUM
     Indication: PRODUCT USED FOR UNKNOWN INDICATION
     Route: 065
  2. NEURONTIN [Concomitant]
     Active Substance: GABAPENTIN
     Indication: MUSCLE RELAXANT THERAPY
     Dosage: 300 MG, QD
     Route: 065
  3. FLEBOSMIL [Concomitant]
     Indication: CARDIOVASCULAR DISORDER
     Dosage: 500 MG, QD
     Route: 065
  4. AFINITOR [Suspect]
     Active Substance: EVEROLIMUS
     Indication: METASTASES TO LUNG
  5. AFINITOR [Suspect]
     Active Substance: EVEROLIMUS
     Indication: BREAST CANCER METASTATIC
     Dosage: 10 MG, QD
     Route: 048
     Dates: start: 201508, end: 201601
  6. AFINITOR [Suspect]
     Active Substance: EVEROLIMUS
     Indication: METASTASES TO SPINE
  7. ULCON                              /07506401/ [Concomitant]
     Indication: PRODUCT USED FOR UNKNOWN INDICATION
     Dosage: 2 MG, QD
     Route: 065

REACTIONS (11)
  - Immobile [Unknown]
  - Peripheral swelling [Recovering/Resolving]
  - Metastases to central nervous system [Unknown]
  - Vein disorder [Recovering/Resolving]
  - Pain [Recovering/Resolving]
  - Asthenia [Unknown]
  - Balance disorder [Recovering/Resolving]
  - Cerebral disorder [Unknown]
  - Gastric disorder [Unknown]
  - Fall [Recovering/Resolving]
  - Flatulence [Recovering/Resolving]
